FAERS Safety Report 4873767-6 (Version None)
Quarter: 2005Q4

REPORT INFORMATION
  Report Type: 
  Country: None (occurrence: None)
  Receive Date: 20051201
  Receipt Date: 20050808
  Transmission Date: 20060501
  Serious: No
  Sender: FDA-Public Use
  Company Number: 2005PV000969

PATIENT
  Age: 52 Year
  Sex: Male
  Weight: 89.3586 kg

DRUGS (13)
  1. BYETTA [Suspect]
     Indication: DIABETES MELLITUS NON-INSULIN-DEPENDENT
     Dosage: SEE IMAGE
     Route: 058
     Dates: start: 20050615, end: 20050714
  2. BYETTA [Suspect]
     Indication: DIABETES MELLITUS NON-INSULIN-DEPENDENT
     Dosage: SEE IMAGE
     Route: 058
     Dates: start: 20050714
  3. MULTIVITAMIN [Concomitant]
  4. NEURONTIN [Concomitant]
  5. AVANDIA [Concomitant]
  6. ACIPHEX [Concomitant]
  7. ZINC [Concomitant]
  8. NORVASC [Concomitant]
  9. NIASPAN [Concomitant]
  10. DIOVAN HCT [Concomitant]
  11. GLUCOPHAGE [Concomitant]
  12. ASPIRIN [Concomitant]
  13. TRICOR [Concomitant]

REACTIONS (6)
  - ABDOMINAL DISTENSION [None]
  - DECREASED APPETITE [None]
  - DYSPEPSIA [None]
  - EARLY SATIETY [None]
  - NAUSEA [None]
  - WEIGHT DECREASED [None]
